FAERS Safety Report 17172302 (Version 4)
Quarter: 2020Q2

REPORT INFORMATION
  Report Type: Spontaneous
  Country: IN (occurrence: IN)
  Receive Date: 20191218
  Receipt Date: 20200414
  Transmission Date: 20200713
  Serious: Yes (Other)
  Sender: FDA-Public Use
  Company Number: NVSC2019IN073242

PATIENT
  Age: 63 Year
  Sex: Male
  Weight: 80 kg

DRUGS (3)
  1. NEVANAC [Suspect]
     Active Substance: NEPAFENAC
     Dosage: UNK, TID
     Route: 047
  2. NEVANAC [Suspect]
     Active Substance: NEPAFENAC
     Indication: INTRAOCULAR PRESSURE INCREASED
     Dosage: 1 OT, BID
     Route: 047
     Dates: start: 201911
  3. NEVANAC [Suspect]
     Active Substance: NEPAFENAC
     Dosage: 2 GTT, BID
     Route: 047

REACTIONS (6)
  - Hyphaema [Not Recovered/Not Resolved]
  - Drug ineffective [Not Recovered/Not Resolved]
  - Blindness unilateral [Not Recovered/Not Resolved]
  - Nephrolithiasis [Not Recovered/Not Resolved]
  - Renal cyst [Not Recovered/Not Resolved]
  - Visual acuity reduced [Not Recovered/Not Resolved]

NARRATIVE: CASE EVENT DATE: 201911
